FAERS Safety Report 4516396-6 (Version None)
Quarter: 2004Q4

REPORT INFORMATION
  Report Type: 
  Country: None (occurrence: None)
  Receive Date: 20041202
  Receipt Date: 20041025
  Transmission Date: 20050328
  Serious: Yes (Other)
  Sender: FDA-Public Use
  Company Number: 200420698GDDC

PATIENT
  Age: 25 Year
  Sex: Female

DRUGS (4)
  1. KETEK [Suspect]
     Indication: PHARYNGITIS
     Route: 048
     Dates: start: 20031025, end: 20031027
  2. NIMESULIDE [Concomitant]
     Route: 048
     Dates: start: 20031025, end: 20031026
  3. AMBROXOL [Concomitant]
     Route: 048
     Dates: start: 20031025, end: 20031026
  4. PARACETAMOL [Concomitant]
     Route: 048
     Dates: start: 20031025, end: 20031026

REACTIONS (7)
  - ACTIVITIES OF DAILY LIVING IMPAIRED [None]
  - AMAUROSIS FUGAX [None]
  - ANXIETY [None]
  - EYE INFLAMMATION [None]
  - EYE PAIN [None]
  - STRESS SYMPTOMS [None]
  - VISION BLURRED [None]
